FAERS Safety Report 8830455 (Version 1)
Quarter: 2012Q4

REPORT INFORMATION
  Report Type: 
  Country: US (occurrence: US)
  Receive Date: 20121009
  Receipt Date: 20121009
  Transmission Date: 20130627
  Serious: No
  Sender: FDA-Public Use
  Company Number: US-009507513-1210USA003311

PATIENT
  Age: 53 Year
  Sex: Female

DRUGS (7)
  1. PEGINTRON [Suspect]
     Indication: HEPATITIS C
     Dosage: 150 Microgram, qw
     Route: 058
     Dates: start: 20120416, end: 201210
  2. REBETOL [Suspect]
     Indication: HEPATITIS C
     Dosage: 1600 mg, qd
     Route: 048
     Dates: end: 201210
  3. VICTRELIS [Suspect]
     Indication: HEPATITIS C
     Dosage: 800 mg, tid
     Route: 048
     Dates: end: 201210
  4. DIOVAN [Concomitant]
  5. HYDROCODONE [Concomitant]
  6. DILTIAZEM HYDROCHLORIDE [Concomitant]
  7. OXYCODONE [Concomitant]

REACTIONS (1)
  - Drug ineffective [Unknown]
